FAERS Safety Report 7413592-5 (Version None)
Quarter: 2011Q2

REPORT INFORMATION
  Report Type: 
  Country: None (occurrence: None)
  Receive Date: 20110413
  Receipt Date: 20110405
  Transmission Date: 20111010
  Serious: Yes (Death, Life-Threatening, Hospitalization)
  Sender: FDA-Public Use
  Company Number: DZ-GENZYME-POMP-1001399

PATIENT
  Sex: Male
  Weight: 5.2 kg

DRUGS (5)
  1. VANCOMYCIN [Concomitant]
     Indication: PRODUCT USED FOR UNKNOWN INDICATION
     Dosage: 60 MG/KG, UNK
  2. CAPTOPRIL [Concomitant]
     Indication: PRODUCT USED FOR UNKNOWN INDICATION
     Dosage: 0.5 DF, BID
  3. MYOZYME [Suspect]
     Indication: GLYCOGEN STORAGE DISEASE TYPE II
     Dosage: UNK, Q15D
     Route: 042
     Dates: start: 20110126
  4. LASIX [Suspect]
     Indication: PRODUCT USED FOR UNKNOWN INDICATION
  5. CLAFORAN [Concomitant]
     Indication: PRODUCT USED FOR UNKNOWN INDICATION
     Dosage: 200 MG/KG, UNK

REACTIONS (2)
  - HYPOVOLAEMIC SHOCK [None]
  - DEATH [None]
